FAERS Safety Report 9207235 (Version 2)
Quarter: 2013Q4

REPORT INFORMATION
  Report Type: Spontaneous
  Country: US (occurrence: US)
  Receive Date: 20130403
  Receipt Date: 20131031
  Transmission Date: 20140711
  Serious: Yes (Hospitalization, Disabling, Other)
  Sender: FDA-Public Use
  Company Number: US-BAYER-2013-039680

PATIENT
  Age: 20 Year
  Sex: Female

DRUGS (5)
  1. YAZ [Suspect]
     Dosage: UNK
     Dates: start: 200901, end: 200908
  2. YASMIN [Suspect]
     Dosage: UNK
     Dates: start: 200901, end: 200908
  3. OCELLA [Suspect]
     Dosage: UNK
     Dates: start: 200901, end: 200908
  4. SYNTHROID [Concomitant]
     Dosage: 125 MCG
  5. XOPENEX [Concomitant]
     Indication: ASTHMA
     Dosage: UNK UNK, PRN

REACTIONS (7)
  - Cholecystitis chronic [None]
  - Gallbladder disorder [None]
  - Injury [None]
  - Pain [None]
  - Deformity [None]
  - Anxiety [None]
  - Anhedonia [None]
